FAERS Safety Report 16794517 (Version 4)
Quarter: 2019Q4

REPORT INFORMATION
  Report Type: Spontaneous
  Country: ES (occurrence: ES)
  Receive Date: 20190911
  Receipt Date: 20191224
  Transmission Date: 20200122
  Serious: Yes (Death, Hospitalization)
  Sender: FDA-Public Use
  Company Number: ES-ASTRAZENECA-2019SF27224

PATIENT
  Age: 90 Year
  Sex: Female

DRUGS (11)
  1. ATROVENT [Suspect]
     Active Substance: IPRATROPIUM BROMIDE
     Indication: CHRONIC OBSTRUCTIVE PULMONARY DISEASE
     Dosage: 2 INH EVERY 8 HOURS INHALATED
     Route: 055
  2. OMEPRAZOL [Suspect]
     Active Substance: OMEPRAZOLE
     Indication: OESOPHAGITIS
     Route: 048
  3. IRON SULFATE [Suspect]
     Active Substance: FERROUS SULFATE ANHYDROUS
     Indication: IRON DEFICIENCY
     Route: 048
  4. FUROSEMIDE. [Suspect]
     Active Substance: FUROSEMIDE
     Indication: CARDIAC FAILURE CONGESTIVE
     Route: 048
  5. ALENDRONATE [Suspect]
     Active Substance: ALENDRONATE SODIUM
     Indication: OSTEOPOROSIS
     Route: 048
  6. SPIRONOLACTONE. [Suspect]
     Active Substance: SPIRONOLACTONE
     Indication: HYPERTENSION
     Route: 048
  7. LISINOPRIL. [Suspect]
     Active Substance: LISINOPRIL
     Indication: HYPERTENSION
     Route: 048
  8. ESCITALOPRAM [Suspect]
     Active Substance: ESCITALOPRAM OXALATE
     Indication: DEPRESSION
     Route: 048
  9. BISOPROLOL [Suspect]
     Active Substance: BISOPROLOL
     Indication: ATRIAL FIBRILLATION
     Route: 048
  10. SINTROM [Suspect]
     Active Substance: ACENOCOUMAROL
     Indication: ATRIAL FIBRILLATION
     Route: 048
  11. ALLOPURINOL. [Suspect]
     Active Substance: ALLOPURINOL
     Indication: HYPERURICAEMIA
     Route: 048

REACTIONS (15)
  - Thermohypoaesthesia [Fatal]
  - Amaurosis [Fatal]
  - Pupillary reflex impaired [Fatal]
  - Neuromyelitis optica spectrum disorder [Fatal]
  - Respiratory tract infection [Fatal]
  - Multimorbidity [Fatal]
  - Pneumonia [Fatal]
  - Urinary retention [Fatal]
  - Optic ischaemic neuropathy [Fatal]
  - Hyperreflexia [Fatal]
  - Muscular weakness [Fatal]
  - Cardiac failure [Fatal]
  - Extensor plantar response [Fatal]
  - Sight disability [Fatal]
  - Hypoaesthesia [Fatal]

NARRATIVE: CASE EVENT DATE: 20150813
